FAERS Safety Report 19017690 (Version 1)
Quarter: 2021Q1

REPORT INFORMATION
  Report Type: Spontaneous
  Country: CN (occurrence: CN)
  Receive Date: 20210317
  Receipt Date: 20210317
  Transmission Date: 20210420
  Serious: Yes (Other)
  Sender: FDA-Public Use
  Company Number: CN-TOPROL-2021000050

PATIENT
  Age: 58 Year
  Sex: Female

DRUGS (2)
  1. BENZBROMARONE [Concomitant]
     Active Substance: BENZBROMARONE
     Indication: PRODUCT USED FOR UNKNOWN INDICATION
     Route: 048
     Dates: start: 20210219, end: 20210301
  2. BETALOC ZOK [Suspect]
     Active Substance: METOPROLOL SUCCINATE
     Indication: HYPERTHYROIDISM
     Route: 048
     Dates: start: 20210218, end: 20210301

REACTIONS (2)
  - Product use in unapproved indication [Unknown]
  - Gout [Unknown]
